FAERS Safety Report 4470877-2 (Version None)
Quarter: 2004Q4

REPORT INFORMATION
  Report Type: 
  Country: None (occurrence: None)
  Receive Date: 20041011
  Receipt Date: 20040929
  Transmission Date: 20050328
  Serious: Yes (Hospitalization)
  Sender: FDA-Public Use
  Company Number: US-JNJFOC-20040703551

PATIENT
  Age: 47 Year
  Sex: Female
  Weight: 38.56 kg

DRUGS (11)
  1. DURAGESIC [Suspect]
     Route: 062
     Dates: start: 19990101
  2. DURAGESIC [Suspect]
     Route: 062
     Dates: start: 19990101
  3. DURAGESIC [Suspect]
     Route: 062
     Dates: start: 19990101
  4. METHADONE HCL [Concomitant]
     Indication: PAIN
     Route: 049
  5. PHENOBARBITAL TAB [Concomitant]
     Indication: EPILEPSY
     Route: 049
  6. TRAZODONE HCL [Concomitant]
     Route: 049
  7. PERCOCET [Concomitant]
     Route: 049
  8. PERCOCET [Concomitant]
     Indication: PAIN
     Dosage: 7.5/500 MG
     Route: 049
  9. HYDROCODONE [Concomitant]
     Indication: PAIN
     Route: 049
  10. TEGRETOL [Concomitant]
     Route: 049
  11. PAROXETINE [Concomitant]
     Indication: DRUG USE FOR UNKNOWN INDICATION
     Route: 049

REACTIONS (15)
  - ABDOMINAL DISTENSION [None]
  - ANOREXIA [None]
  - BONE GRAFT [None]
  - CHEST PAIN [None]
  - CONFUSIONAL STATE [None]
  - DYSPNOEA [None]
  - FALL [None]
  - HIP FRACTURE [None]
  - HYPERHIDROSIS [None]
  - INCOHERENT [None]
  - PALPITATIONS [None]
  - SPEECH DISORDER [None]
  - UPPER LIMB FRACTURE [None]
  - VISUAL DISTURBANCE [None]
  - WEIGHT DECREASED [None]
